FAERS Safety Report 8833096 (Version 1)
Quarter: 2012Q4

REPORT INFORMATION
  Report Type: 
  Country: NL (occurrence: NL)
  Receive Date: 20121010
  Receipt Date: 20121010
  Transmission Date: 20130627
  Serious: Yes (Hospitalization)
  Sender: FDA-Public Use
  Company Number: NL-AMGEN-NLDSP2012064331

PATIENT
  Sex: Female

DRUGS (1)
  1. ENBREL [Suspect]
     Indication: RHEUMATOID ARTHRITIS
     Dosage: 50 mg, weekly
     Dates: start: 20111030, end: 201112

REACTIONS (4)
  - Limb injury [Recovering/Resolving]
  - Toe amputation [Recovering/Resolving]
  - Wound [Recovering/Resolving]
  - Wound infection [Recovering/Resolving]
